FAERS Safety Report 9799611 (Version 2)
Quarter: 2015Q3

REPORT INFORMATION
  Report Type: Spontaneous
  Country: US (occurrence: US)
  Receive Date: 20140106
  Receipt Date: 20150806
  Transmission Date: 20151125
  Serious: No
  Sender: FDA-Public Use
  Company Number: US-GILEAD-2010-0031597

PATIENT
  Age: 37 Year
  Sex: Female
  Weight: 71.67 kg

DRUGS (15)
  1. TYVASO [Concomitant]
     Active Substance: TREPROSTINIL
     Dates: start: 20100211
  2. SPIRONOLACTONE. [Concomitant]
     Active Substance: SPIRONOLACTONE
  3. ORTHO LOW [Concomitant]
  4. POTASSIUM CHLORIDE. [Concomitant]
     Active Substance: POTASSIUM CHLORIDE
  5. LEVOTHYROXINE. [Concomitant]
     Active Substance: LEVOTHYROXINE
  6. CALCIUM [Concomitant]
     Active Substance: CALCIUM
  7. ADCIRCA [Concomitant]
     Active Substance: TADALAFIL
     Dates: start: 20091023
  8. COREG [Concomitant]
     Active Substance: CARVEDILOL
  9. LASIX [Concomitant]
     Active Substance: FUROSEMIDE
  10. COUMADIN [Concomitant]
     Active Substance: WARFARIN SODIUM
  11. TRAMADOL. [Concomitant]
     Active Substance: TRAMADOL
  12. ALTACE [Concomitant]
     Active Substance: RAMIPRIL
  13. MUCINEX [Concomitant]
     Active Substance: GUAIFENESIN
  14. LETAIRIS [Suspect]
     Active Substance: AMBRISENTAN
     Indication: PULMONARY ARTERIAL HYPERTENSION
     Dates: start: 20090709
  15. VITAMIN D [Concomitant]
     Active Substance: CHOLECALCIFEROL

REACTIONS (1)
  - Sinusitis [Unknown]
